FAERS Safety Report 6905774-3 (Version None)
Quarter: 2010Q3

REPORT INFORMATION
  Report Type: 
  Country: None (occurrence: None)
  Receive Date: 20100708
  Receipt Date: 20090422
  Transmission Date: 20110219
  Serious: Yes (Other)
  Sender: FDA-Public Use
  Company Number: 2009205349

PATIENT
  Age: 48 Year
  Sex: Male
  Weight: 63.5 kg

DRUGS (1)
  1. CHANTIX [Suspect]
     Indication: SMOKING CESSATION THERAPY
     Dosage: 1 MG, 2X/DAY
     Dates: start: 20080101

REACTIONS (7)
  - ANGER [None]
  - BACK PAIN [None]
  - IRRITABILITY [None]
  - MUSCLE SPASMS [None]
  - PSYCHOTIC DISORDER [None]
  - SLEEP DISORDER [None]
  - STRESS [None]
